FAERS Safety Report 12712070 (Version 2)
Quarter: 2016Q4

REPORT INFORMATION
  Report Type: Spontaneous
  Country: CA (occurrence: CA)
  Receive Date: 20160902
  Receipt Date: 20161227
  Transmission Date: 20170207
  Serious: Yes (Other)
  Sender: FDA-Public Use
  Company Number: CA-REGENERON PHARMACEUTICALS, INC.-2016-21077

PATIENT

DRUGS (2)
  1. EYLEA [Suspect]
     Active Substance: AFLIBERCEPT
     Indication: PRODUCT USED FOR UNKNOWN INDICATION
     Dosage: UNK
  2. EYLEA [Suspect]
     Active Substance: AFLIBERCEPT
     Dosage: LAST EYLEA TREATMENT
     Dates: start: 20160708, end: 20160708

REACTIONS (1)
  - Retinal haemorrhage [Unknown]
